FAERS Safety Report 18451974 (Version 1)
Quarter: 2020Q4

REPORT INFORMATION
  Report Type: Spontaneous
  Country: US (occurrence: US)
  Receive Date: 20201102
  Receipt Date: 20201102
  Transmission Date: 20210114
  Serious: Yes (Other)
  Sender: FDA-Public Use
  Company Number: US-MYLANLABS-2020M1090522

PATIENT
  Age: 41 Year
  Sex: Female

DRUGS (8)
  1. TOPIRAMATE. [Suspect]
     Active Substance: TOPIRAMATE
     Indication: MIGRAINE
     Route: 065
  2. NORTRIPTYLINE [Suspect]
     Active Substance: NORTRIPTYLINE
     Indication: MIGRAINE
     Dosage: UNK
     Route: 065
  3. BUTALBITAL, ACETAMINOPHEN, AND CAFFEINE [Concomitant]
     Active Substance: ACETAMINOPHEN\BUTALBITAL\CAFFEINE
     Indication: MIGRAINE
     Route: 065
  4. AMFETAMINE/DEXAMFETAMINE [Suspect]
     Active Substance: AMPHETAMINE SULFATE\DEXTROAMPHETAMINE
     Indication: ATTENTION DEFICIT HYPERACTIVITY DISORDER
     Dosage: UNK
     Route: 065
  5. VALPROIC ACID. [Suspect]
     Active Substance: VALPROIC ACID
     Indication: MIGRAINE
     Dosage: UNK
     Route: 065
  6. AIMOVIG [Suspect]
     Active Substance: ERENUMAB-AOOE
     Indication: MIGRAINE
     Dosage: UNK
     Route: 065
  7. TOFACITINIB [Concomitant]
     Active Substance: TOFACITINIB
     Indication: RHEUMATOID ARTHRITIS
     Dosage: UNK
     Route: 065
  8. RIZATRIPTAN. [Suspect]
     Active Substance: RIZATRIPTAN
     Indication: MIGRAINE
     Dosage: UNK
     Route: 065

REACTIONS (3)
  - Colitis ischaemic [Unknown]
  - Off label use [Unknown]
  - Drug ineffective [Unknown]
